FAERS Safety Report 8042795-4 (Version None)
Quarter: 2012Q1

REPORT INFORMATION
  Report Type: 
  Country: None (occurrence: None)
  Receive Date: 20120112
  Receipt Date: 20120103
  Transmission Date: 20120608
  Serious: Yes (Other)
  Sender: FDA-Public Use
  Company Number: GB-JHP PHARMACEUTICALS, LLC-JHP201200002

PATIENT
  Age: 75 Year
  Sex: Male

DRUGS (3)
  1. PITRESSIN [Suspect]
     Dosage: 0.03 UNITS/MIN THEN WEANED SLOWLY AND DISCONTINUED WHEN 0.007 UNITS/MIN
     Route: 042
  2. NOREPINEPHRINE BITARTRATE [Concomitant]
  3. ENOXIMONE [Concomitant]

REACTIONS (2)
  - DRUG WITHDRAWAL SYNDROME [None]
  - DIABETES INSIPIDUS [None]
